FAERS Safety Report 9381391 (Version 2)
Quarter: 2013Q3

REPORT INFORMATION
  Report Type: Report from Study
  Country: BR (occurrence: BR)
  Receive Date: 20130703
  Receipt Date: 20130709
  Transmission Date: 20140515
  Serious: Yes (Hospitalization, Other)
  Sender: FDA-Public Use
  Company Number: PHHY2013BR067151

PATIENT
  Sex: Female
  Weight: 60 kg

DRUGS (7)
  1. MYFORTIC [Suspect]
     Indication: IMMUNOSUPPRESSION
     Dosage: 360 MG, BID (TWICE DAILY)
     Route: 048
     Dates: start: 20090104
  2. TACROLIMUS SANDOZ [Suspect]
     Indication: IMMUNOSUPPRESSION
     Dosage: 8 MG, BID (TWICE DAILY)
     Route: 048
     Dates: start: 20090104, end: 20130512
  3. PREDNISONE SANDOZ [Suspect]
     Indication: IMMUNOSUPPRESSION
     Dosage: 30 MG TAPERING OFF
     Route: 048
     Dates: start: 20090104
  4. PREDNISONE SANDOZ [Suspect]
     Dosage: 5 MG/DAY
     Route: 048
  5. SIMULECT [Suspect]
     Indication: IMMUNOSUPPRESSION
     Dosage: 20 MG/DAY
     Route: 048
     Dates: start: 20090104, end: 20090108
  6. OMEPRAZOLE [Concomitant]
     Dosage: 40 MG, UNK
     Route: 048
     Dates: start: 20090110
  7. BACTRIM [Concomitant]
     Indication: ANTIFUNGAL PROPHYLAXIS
     Dosage: UNK MG, (400/85MG) UNK
     Route: 048
     Dates: start: 20090110

REACTIONS (8)
  - Demyelination [Recovering/Resolving]
  - Diplopia [Recovering/Resolving]
  - Ataxia [Recovering/Resolving]
  - Dizziness [Recovering/Resolving]
  - Headache [Recovering/Resolving]
  - Nausea [Recovering/Resolving]
  - CSF protein increased [Recovering/Resolving]
  - Blood creatinine increased [Recovering/Resolving]
